FAERS Safety Report 9844606 (Version 1)
Quarter: 2014Q1

REPORT INFORMATION
  Report Type: Spontaneous
  Country: US (occurrence: None)
  Receive Date: 20140123
  Receipt Date: 20140123
  Transmission Date: 20141002
  Serious: Yes (Disabling)
  Sender: FDA-Public Use
  Company Number: None

PATIENT
  Age: 39 Year
  Sex: Female
  Weight: 43.09 kg

DRUGS (1)
  1. LEVAQUIN [Suspect]
     Indication: SALMONELLOSIS
     Dosage: 2 PILLS TAKEN BY MOUTH
     Route: 048
     Dates: start: 20140107

REACTIONS (5)
  - Muscle spasms [None]
  - Paraesthesia [None]
  - Pain in extremity [None]
  - Insomnia [None]
  - Sensation of heaviness [None]
